FAERS Safety Report 16889732 (Version 6)
Quarter: 2021Q2

REPORT INFORMATION
  Report Type: Spontaneous
  Country: ES (occurrence: ES)
  Receive Date: 20191007
  Receipt Date: 20210401
  Transmission Date: 20210716
  Serious: Yes (Hospitalization, Other)
  Sender: FDA-Public Use
  Company Number: ES-PFIZER INC-2019427057

PATIENT
  Age: 81 Year
  Sex: Female

DRUGS (10)
  1. TACROLIMUS. [Suspect]
     Active Substance: TACROLIMUS
     Indication: CLOSTRIDIUM DIFFICILE INFECTION
     Dosage: UNK
  2. ZINPLAVA [Suspect]
     Active Substance: BEZLOTOXUMAB
     Indication: CLOSTRIDIUM DIFFICILE INFECTION
     Dosage: 700 MG, INFUSION
     Dates: start: 20190321
  3. PREDNISONE. [Suspect]
     Active Substance: PREDNISONE
     Dosage: UNK
  4. ERTAPENEM SODIUM [Suspect]
     Active Substance: ERTAPENEM SODIUM
     Indication: RENAL GRAFT INFECTION
     Dosage: UNK
     Dates: start: 201903
  5. ERTAPENEM SODIUM [Suspect]
     Active Substance: ERTAPENEM SODIUM
     Indication: ESCHERICHIA INFECTION
  6. VANCOMYCIN [Suspect]
     Active Substance: VANCOMYCIN
     Indication: CLOSTRIDIUM DIFFICILE INFECTION
     Dosage: UNK
     Dates: start: 20190321
  7. SIROLIMUS. [Suspect]
     Active Substance: SIROLIMUS
     Dosage: UNK
  8. ERTAPENEM SODIUM [Suspect]
     Active Substance: ERTAPENEM SODIUM
     Indication: KLEBSIELLA INFECTION
     Dosage: UNK
     Dates: start: 20181225, end: 2019
  9. FIDAXOMICIN [Suspect]
     Active Substance: FIDAXOMICIN
     Indication: CLOSTRIDIUM DIFFICILE INFECTION
     Dosage: UNK
     Dates: start: 201901
  10. OMEPRAZOLE. [Suspect]
     Active Substance: OMEPRAZOLE
     Dosage: UNK

REACTIONS (12)
  - Renal graft infection [Unknown]
  - Clostridium test positive [Unknown]
  - Pyrexia [Unknown]
  - Escherichia bacteraemia [Unknown]
  - Urinary tract infection pseudomonal [Unknown]
  - Klebsiella infection [Unknown]
  - Clostridium difficile infection [Unknown]
  - Escherichia test positive [Unknown]
  - Avian influenza [Unknown]
  - Diarrhoea [Unknown]
  - Adenovirus infection [Unknown]
  - Drug ineffective [Unknown]

NARRATIVE: CASE EVENT DATE: 20181225
